FAERS Safety Report 9754537 (Version 1)
Quarter: 2013Q4

REPORT INFORMATION
  Report Type: Spontaneous
  Country: US (occurrence: US)
  Receive Date: 20131213
  Receipt Date: 20131213
  Transmission Date: 20140711
  Serious: No
  Sender: FDA-Public Use
  Company Number: US-GLAXOSMITHKLINE-A1000231A

PATIENT
  Age: 53 Year
  Sex: Male

DRUGS (2)
  1. NICODERM CQ CLEAR 21MG [Suspect]
     Indication: EX-TOBACCO USER
  2. NICODERM CQ CLEAR 21MG [Suspect]
     Route: 062
     Dates: start: 201210

REACTIONS (7)
  - Abnormal dreams [Recovered/Resolved]
  - Local swelling [Not Recovered/Not Resolved]
  - Urticaria [Not Recovered/Not Resolved]
  - Hypersensitivity [Unknown]
  - Rash [Unknown]
  - Application site discolouration [Unknown]
  - Application site urticaria [Unknown]
